FAERS Safety Report 8463510 (Version 2)
Quarter: 2013Q2

REPORT INFORMATION
  Report Type: Spontaneous
  Country: US (occurrence: None)
  Receive Date: 20120227
  Receipt Date: 20120525
  Transmission Date: 20140414
  Serious: No
  Sender: FDA-Public Use
  Company Number: 342651

PATIENT
  Age: 58 Year
  Sex: Male

DRUGS (2)
  1. VICTOZA [Suspect]
     Indication: TYPE 2 DIABETES MELLITUS
     Route: 058
  2. LANTUS [Suspect]
     Indication: TYPE 2 DIABETES MELLITUS
     Dosage: 39 U

REACTIONS (6)
  - WEIGHT DECREASED [None]
  - NAUSEA [None]
  - DYSPEPSIA [None]
  - VOMITING [None]
  - DIARRHOEA [None]
  - BLOOD GLUCOSE FLUCTUATION [None]
